FAERS Safety Report 13794274 (Version 3)
Quarter: 2018Q2

REPORT INFORMATION
  Report Type: Spontaneous
  Country: US (occurrence: US)
  Receive Date: 20170726
  Receipt Date: 20180608
  Transmission Date: 20180711
  Serious: No
  Sender: FDA-Public Use
  Company Number: US-IPSEN BIOPHARMACEUTICALS, INC.-2017-04814

PATIENT
  Sex: Female

DRUGS (15)
  1. UBIDECARENONE [Concomitant]
     Active Substance: UBIDECARENONE
  2. DILTIAZEM HCL [Concomitant]
     Active Substance: DILTIAZEM HYDROCHLORIDE
  3. VITAMIN D [Concomitant]
     Active Substance: CHOLECALCIFEROL
  4. ASPIRIN. [Concomitant]
     Active Substance: ASPIRIN
  5. DEXILANT [Concomitant]
     Active Substance: DEXLANSOPRAZOLE
  6. XERMELO [Suspect]
     Active Substance: TELOTRISTAT ETHYL
     Indication: CARCINOID TUMOUR
     Dosage: 1-2 TABLETS DAILY, SHE TAKES IT HOW SHE FEELS SHE NEEDS
     Route: 048
     Dates: start: 201703, end: 2017
  7. FEXOFENADINE [Concomitant]
     Active Substance: FEXOFENADINE\FEXOFENADINE HYDROCHLORIDE
     Indication: PRODUCT USED FOR UNKNOWN INDICATION
  8. XERMELO [Suspect]
     Active Substance: TELOTRISTAT ETHYL
     Indication: CARCINOID SYNDROME
     Route: 048
     Dates: start: 2017
  9. ALBUTEROL. [Concomitant]
     Active Substance: ALBUTEROL
  10. MECLIZINE [Concomitant]
     Active Substance: MECLIZINE HYDROCHLORIDE
  11. ROSUVASTATIN CALCIUM. [Concomitant]
     Active Substance: ROSUVASTATIN CALCIUM
  12. EDARBI [Concomitant]
     Active Substance: AZILSARTAN KAMEDOXOMIL
  13. FISH OIL [Concomitant]
     Active Substance: FISH OIL
  14. SOMATULINE [Suspect]
     Active Substance: LANREOTIDE ACETATE
     Indication: PRODUCT USED FOR UNKNOWN INDICATION
     Dosage: NOT REPORTED
     Route: 065
  15. NASONEX [Concomitant]
     Active Substance: MOMETASONE FUROATE

REACTIONS (2)
  - Intentional product misuse [Unknown]
  - Hepatic enzyme increased [Unknown]

NARRATIVE: CASE EVENT DATE: 2017
